FAERS Safety Report 10254040 (Version 3)
Quarter: 2014Q3

REPORT INFORMATION
  Report Type: Spontaneous
  Country: US (occurrence: US)
  Receive Date: 20140623
  Receipt Date: 20140730
  Transmission Date: 20150326
  Serious: Yes (Hospitalization)
  Sender: FDA-Public Use
  Company Number: US-EXELIXIS-CABO-14003950

PATIENT
  Age: 72 Year
  Sex: Male

DRUGS (13)
  1. SERTRALINE [Concomitant]
     Active Substance: SERTRALINE HYDROCHLORIDE
  2. CLARITIN [Concomitant]
     Active Substance: LORATADINE
  3. PROCHLORPERAZINE. [Concomitant]
     Active Substance: PROCHLORPERAZINE
  4. OMEPRAZOLE. [Concomitant]
     Active Substance: OMEPRAZOLE
  5. COMETRIQ [Suspect]
     Active Substance: CABOZANTINIB S-MALATE
     Indication: THYROID CANCER
     Dosage: 140 MG, QD
     Route: 048
     Dates: start: 20140117, end: 20140121
  6. OXYCODONE [Concomitant]
     Active Substance: OXYCODONE
  7. RITALIN [Concomitant]
     Active Substance: METHYLPHENIDATE HYDROCHLORIDE
  8. FENTANYL. [Concomitant]
     Active Substance: FENTANYL
  9. LEVOTHYROXINE [Concomitant]
     Active Substance: LEVOTHYROXINE
  10. PRAVASTATIN [Concomitant]
     Active Substance: PRAVASTATIN\PRAVASTATIN SODIUM
  11. ATENOLOL. [Concomitant]
     Active Substance: ATENOLOL
  12. LOPERAMIDE [Concomitant]
     Active Substance: LOPERAMIDE
  13. LORAZEPAM. [Concomitant]
     Active Substance: LORAZEPAM

REACTIONS (17)
  - Diarrhoea [Recovering/Resolving]
  - Asthenia [Unknown]
  - Decreased appetite [Recovered/Resolved]
  - Chills [Unknown]
  - Dysgeusia [Unknown]
  - Rash [Recovered/Resolved]
  - Platelet count increased [None]
  - Confusional state [Recovered/Resolved]
  - Dizziness [Unknown]
  - Weight decreased [Recovered/Resolved]
  - Unevaluable event [Unknown]
  - Ocular icterus [Recovering/Resolving]
  - Fatigue [Recovered/Resolved]
  - Fall [Unknown]
  - Stomatitis [Not Recovered/Not Resolved]
  - Cerebral small vessel ischaemic disease [None]
  - Eating disorder [Unknown]

NARRATIVE: CASE EVENT DATE: 201401
